FAERS Safety Report 16662110 (Version 1)
Quarter: 2019Q3

REPORT INFORMATION
  Report Type: Spontaneous
  Country: US (occurrence: US)
  Receive Date: 20190730
  Receipt Date: 20190730
  Transmission Date: 20191004
  Serious: Yes (Other)
  Sender: FDA-Public Use
  Company Number: None

PATIENT
  Age: 60 Year
  Sex: Male
  Weight: 108 kg

DRUGS (3)
  1. SUNMED FULL SPECTRUM TINCTURE CBD OIL 750 MG [Suspect]
     Active Substance: CANNABIDIOL\HERBALS
     Indication: ARTHRITIS
     Dosage: ?          QUANTITY:1 ML;?
     Route: 060
     Dates: start: 20190602, end: 20190709
  2. BENADRYL [Concomitant]
     Active Substance: DIPHENHYDRAMINE HYDROCHLORIDE
  3. IBUPROFEN. [Concomitant]
     Active Substance: IBUPROFEN

REACTIONS (2)
  - Drug screen positive [None]
  - Loss of employment [None]

NARRATIVE: CASE EVENT DATE: 20190702
